FAERS Safety Report 5238279-9 (Version None)
Quarter: 2007Q1

REPORT INFORMATION
  Report Type: 
  Country: None (occurrence: None)
  Receive Date: 20070215
  Receipt Date: 20070206
  Transmission Date: 20070707
  Serious: Yes (Hospitalization)
  Sender: FDA-Public Use
  Company Number: FR-BAXTER-2007BH001809

PATIENT
  Age: 49 Year
  Sex: Female
  Weight: 50 kg

DRUGS (5)
  1. EXTRANEAL [Suspect]
     Indication: GLOMERULONEPHRITIS
     Route: 033
     Dates: start: 20040101, end: 20070205
  2. CALCITE [Concomitant]
  3. IMOVANE [Concomitant]
  4. MOPRAL [Concomitant]
  5. BALANCE ISO-OSMOLAR SOLUTION [Concomitant]
     Indication: GLOMERULONEPHRITIS
     Dates: start: 20030527

REACTIONS (3)
  - COUGH [None]
  - PERITONITIS BACTERIAL [None]
  - PYREXIA [None]
